FAERS Safety Report 15539546 (Version 3)
Quarter: 2019Q2

REPORT INFORMATION
  Report Type: Spontaneous
  Country: GR (occurrence: GR)
  Receive Date: 20181023
  Receipt Date: 20190403
  Transmission Date: 20190711
  Serious: Yes (Death, Life-Threatening, Hospitalization)
  Sender: FDA-Public Use
  Company Number: GR-ACCORD-073520

PATIENT
  Age: 2 Year
  Sex: Male

DRUGS (10)
  1. RIFAXIMIN. [Suspect]
     Active Substance: RIFAXIMIN
     Indication: INFECTIOUS MONONUCLEOSIS
  2. DEXAMETHASONE. [Suspect]
     Active Substance: DEXAMETHASONE
     Indication: HAEMOPHAGOCYTIC LYMPHOHISTIOCYTOSIS
     Route: 041
  3. TEICOPLANIN [Suspect]
     Active Substance: TEICOPLANIN
     Indication: INFECTIOUS MONONUCLEOSIS
  4. MEROPENEM (MEROPENEM TRIHYDRATE) [Suspect]
     Active Substance: MEROPENEM
     Indication: PRODUCT USED FOR UNKNOWN INDICATION
  5. ACICLOVIR [Suspect]
     Active Substance: ACYCLOVIR
     Indication: INFECTIOUS MONONUCLEOSIS
  6. ALBUMIN HUMAN [Suspect]
     Active Substance: ALBUMIN HUMAN
     Indication: HAEMOPHAGOCYTIC LYMPHOHISTIOCYTOSIS
  7. GANCICLOVIR. [Suspect]
     Active Substance: GANCICLOVIR
     Indication: INFECTIOUS MONONUCLEOSIS
  8. ETOPOSIDE. [Suspect]
     Active Substance: ETOPOSIDE
     Indication: INFECTIOUS MONONUCLEOSIS
  9. METRONIDAZOLE. [Suspect]
     Active Substance: METRONIDAZOLE
     Indication: INFECTIOUS MONONUCLEOSIS
  10. METHYLPREDNISOLONE. [Suspect]
     Active Substance: METHYLPREDNISOLONE
     Indication: INFECTIOUS MONONUCLEOSIS
     Dosage: 2 MG/KG

REACTIONS (2)
  - Drug ineffective [Fatal]
  - Off label use [Unknown]
